FAERS Safety Report 14839136 (Version 1)
Quarter: 2018Q2

REPORT INFORMATION
  Report Type: Spontaneous
  Country: JP (occurrence: JP)
  Receive Date: 20180502
  Receipt Date: 20180502
  Transmission Date: 20180711
  Serious: Yes (Other)
  Sender: FDA-Public Use
  Company Number: JP-PFIZER INC-2018170349

PATIENT
  Age: 80 Year
  Sex: Female

DRUGS (3)
  1. FLUITRAN [Suspect]
     Active Substance: TRICHLORMETHIAZIDE
     Dosage: 2 MG, DAILY
  2. DOXAZOSIN MESILATE [Suspect]
     Active Substance: DOXAZOSIN MESYLATE
     Dosage: 2 MG, DAILY
  3. SPIRONOLACTONE. [Suspect]
     Active Substance: SPIRONOLACTONE
     Dosage: UNK

REACTIONS (4)
  - Hypertension [Unknown]
  - Atrial fibrillation [Unknown]
  - Angina pectoris [Unknown]
  - Renal impairment [Unknown]
